FAERS Safety Report 10543886 (Version 4)
Quarter: 2014Q4

REPORT INFORMATION
  Report Type: Spontaneous
  Country: BR (occurrence: BR)
  Receive Date: 20141027
  Receipt Date: 20141231
  Transmission Date: 20150529
  Serious: Yes (Hospitalization)
  Sender: FDA-Public Use
  Company Number: BR-PFIZER INC-2014294481

PATIENT
  Age: 57 Year
  Sex: Female
  Weight: 59 kg

DRUGS (9)
  1. CELEBRA [Suspect]
     Active Substance: CELECOXIB
     Indication: ARTHRITIS INFECTIVE
     Dosage: 1 CAPSULE OF 200MG TWICE DAILY
     Route: 065
     Dates: start: 20140727, end: 20141118
  2. CELEBRA [Suspect]
     Active Substance: CELECOXIB
     Indication: OSTEOMYELITIS
  3. CELEBRA [Suspect]
     Active Substance: CELECOXIB
     Indication: ARTHRALGIA
  4. OMEPRAZOLE. [Concomitant]
     Active Substance: OMEPRAZOLE
     Indication: GASTRIC POLYPS
     Dosage: 1 TABLET IN THE MORNING
     Dates: start: 2006
  5. OMEPRAZOLE. [Concomitant]
     Active Substance: OMEPRAZOLE
     Indication: GASTRIC DISORDER
  6. PURAN [Concomitant]
     Active Substance: LEVOTHYROXINE SODIUM
     Indication: HYPOTHYROIDISM
     Dosage: 1 TABLET IN THE MORNING
     Route: 065
     Dates: start: 1999
  7. LOSARTAN [Concomitant]
     Active Substance: LOSARTAN
     Indication: HYPERTENSION
     Dosage: 2 TABLETS, DAILY
     Route: 065
     Dates: start: 2013
  8. RIVOTRIL [Concomitant]
     Active Substance: CLONAZEPAM
     Indication: SLEEP DISORDER
     Dosage: 4 OR 5 DROPS AT NIGHT
     Dates: start: 2008
  9. SELOZOK [Concomitant]
     Active Substance: METOPROLOL SUCCINATE
     Indication: ARRHYTHMIA
     Dosage: 1 TABLET DAILY
     Route: 048
     Dates: start: 2013

REACTIONS (5)
  - Condition aggravated [Not Recovered/Not Resolved]
  - Infection [Unknown]
  - Arthralgia [Not Recovered/Not Resolved]
  - Patient-device incompatibility [Unknown]
  - Red blood cell sedimentation rate increased [Unknown]

NARRATIVE: CASE EVENT DATE: 201407
